FAERS Safety Report 4783532-6 (Version None)
Quarter: 2005Q3

REPORT INFORMATION
  Report Type: 
  Country: None (occurrence: None)
  Receive Date: 20050914
  Receipt Date: 20040727
  Transmission Date: 20060218
  Serious: Yes (Hospitalization)
  Sender: FDA-Public Use
  Company Number: 163-20785-04070617

PATIENT
  Age: 75 Year
  Sex: Female
  Weight: 60.782 kg

DRUGS (16)
  1. THALOMID [Suspect]
     Indication: IDIOPATHIC PULMONARY FIBROSIS
     Dosage: 200 MG, DAILY, ORAL
     Route: 048
     Dates: start: 20040301, end: 20040701
  2. PREDNISONE [Concomitant]
  3. LIPITOR [Concomitant]
  4. FOSAMAX [Concomitant]
  5. NITRO-DUR [Concomitant]
  6. DIOVAN [Concomitant]
  7. OSCAL (CALCIUM CARBONATE) [Concomitant]
  8. ECOTRIN (ACETYLSALICYLIC ACID) [Concomitant]
  9. NAPROXEN [Concomitant]
  10. FERROUS SULFATE TAB [Concomitant]
  11. HCTZ (HYDROCHLOROTHIAZIDE) [Concomitant]
  12. KCL (POTASSIUM CHLORIDE) [Concomitant]
  13. TRAVITAN (TRAVOPROST) [Concomitant]
  14. PREMARIN [Concomitant]
  15. PAXIL [Concomitant]
  16. ATIVAN [Concomitant]

REACTIONS (1)
  - PAIN IN EXTREMITY [None]
